FAERS Safety Report 12261290 (Version 1)
Quarter: 2016Q2

REPORT INFORMATION
  Report Type: Report from Study
  Country: ES (occurrence: ES)
  Receive Date: 20160412
  Receipt Date: 20160412
  Transmission Date: 20160815
  Serious: Yes (Hospitalization)
  Sender: FDA-Public Use
  Company Number: ES-ABBVIE-15P-144-1419039-00

PATIENT
  Age: 44 Year
  Sex: Male
  Weight: 82 kg

DRUGS (7)
  1. EXVIERA [Suspect]
     Active Substance: DASABUVIR
     Indication: HEPATITIS C
     Route: 048
     Dates: start: 20150626
  2. VIEKIRAX [Suspect]
     Active Substance: OMBITASVIR\PARITAPREVIR\RITONAVIR
     Indication: HEPATITIS C
     Route: 048
     Dates: start: 20150626
  3. RIBAVIRIN. [Suspect]
     Active Substance: RIBAVIRIN
     Dosage: 2-0-1
     Route: 048
     Dates: start: 20150627
  4. ANAGASTRA [Concomitant]
     Active Substance: PANTOPRAZOLE SODIUM
     Indication: PROPHYLAXIS AGAINST GASTROINTESTINAL ULCER
     Route: 065
     Dates: start: 2000
  5. RIBAVIRIN. [Suspect]
     Active Substance: RIBAVIRIN
     Indication: HEPATITIS C
     Dosage: 3-0-3
     Route: 048
     Dates: start: 20150626, end: 20150627
  6. ZAMENE [Concomitant]
     Active Substance: DEFLAZACORT
     Indication: VASCULITIS
     Route: 065
     Dates: start: 2000
  7. ORFIDAL [Concomitant]
     Active Substance: LORAZEPAM
     Indication: ANXIETY
     Dosage: 0.5 - 0 - 1
     Route: 065
     Dates: start: 1998

REACTIONS (9)
  - Fall [Recovering/Resolving]
  - Pneumonia [Recovering/Resolving]
  - Rib fracture [Recovering/Resolving]
  - Dyspepsia [Recovering/Resolving]
  - Poor peripheral circulation [Unknown]
  - Fatigue [Recovering/Resolving]
  - Tachycardia [Recovering/Resolving]
  - Nail discolouration [Not Recovered/Not Resolved]
  - Asthenia [Recovering/Resolving]

NARRATIVE: CASE EVENT DATE: 20150626
